FAERS Safety Report 7046987-2 (Version None)
Quarter: 2010Q4

REPORT INFORMATION
  Report Type: 
  Country: None (occurrence: None)
  Receive Date: 20101012
  Receipt Date: 20101001
  Transmission Date: 20110411
  Serious: Yes (Life-Threatening)
  Sender: FDA-Public Use
  Company Number: TCI2010A03130

PATIENT
  Age: 60 Year
  Sex: Male

DRUGS (3)
  1. LANSOPRAZOLE [Suspect]
     Indication: DUODENAL ULCER
     Dosage: 30 MG (30 MG, 1 IN 1 D), PER ORAL
     Route: 048
     Dates: end: 20100802
  2. NASPALUN (CEFOPERAZONE SODIUM, SULBACTAM SODIUM) [Suspect]
     Indication: INFLAMMATION
     Dosage: 1 GM (0.5 GM, 2 IN 1 D), INTRAVENOUS DRIP
     Route: 041
     Dates: start: 20100726, end: 20100802
  3. URSO 250 [Concomitant]
     Indication: JAUNDICE CHOLESTATIC

REACTIONS (3)
  - FEBRILE NEUTROPENIA [None]
  - INFLAMMATION [None]
  - MALAISE [None]
